FAERS Safety Report 5476699-8 (Version None)
Quarter: 2007Q4

REPORT INFORMATION
  Report Type: 
  Country: None (occurrence: None)
  Receive Date: 20071004
  Receipt Date: 20070719
  Transmission Date: 20080405
  Serious: No
  Sender: FDA-Public Use
  Company Number: A0659198A

PATIENT
  Age: 72 Year
  Sex: Female

DRUGS (5)
  1. ADVAIR DISKUS 100/50 [Suspect]
     Dosage: 1PUFF TWICE PER DAY
     Route: 055
     Dates: start: 20070618, end: 20070701
  2. ZYRTEC [Concomitant]
  3. VALIUM [Concomitant]
  4. NITROFURANTOIN [Concomitant]
  5. PROVENTIL [Concomitant]

REACTIONS (6)
  - AGEUSIA [None]
  - DRY MOUTH [None]
  - DYSGEUSIA [None]
  - INSOMNIA [None]
  - LIP DISORDER [None]
  - NAUSEA [None]
